FAERS Safety Report 15934860 (Version 12)
Quarter: 2020Q1

REPORT INFORMATION
  Report Type: Spontaneous
  Country: US (occurrence: US)
  Receive Date: 20190207
  Receipt Date: 20200107
  Transmission Date: 20200409
  Serious: Yes (Hospitalization)
  Sender: FDA-Public Use
  Company Number: US-ACTELION-A-US2019-185593

PATIENT
  Age: 80 Year
  Sex: Female
  Weight: 79.82 kg

DRUGS (10)
  1. ADEMPAS [Suspect]
     Active Substance: RIOCIGUAT
     Dosage: 0.5 MG, QD
     Route: 048
  2. ELIQUIS [Concomitant]
     Active Substance: APIXABAN
  3. ADEMPAS [Suspect]
     Active Substance: RIOCIGUAT
     Dosage: 1 MG, TID
     Route: 065
     Dates: start: 20190203
  4. ADEMPAS [Suspect]
     Active Substance: RIOCIGUAT
     Dosage: 1.5 MG, TID
     Route: 065
  5. OPSUMIT [Suspect]
     Active Substance: MACITENTAN
     Indication: PULMONARY ARTERIAL HYPERTENSION
     Dosage: 10 MG, QD
     Route: 048
     Dates: start: 201812, end: 201907
  6. ADEMPAS [Suspect]
     Active Substance: RIOCIGUAT
     Indication: PRODUCT USED FOR UNKNOWN INDICATION
     Route: 065
  7. ADEMPAS [Suspect]
     Active Substance: RIOCIGUAT
     Dosage: 1 MG, QD
     Route: 065
  8. METOPROLOL. [Concomitant]
     Active Substance: METOPROLOL
     Dosage: 25 MG, TID
  9. AMLODIPINE [Concomitant]
     Active Substance: AMLODIPINE BESYLATE
  10. DILTIAZEM. [Concomitant]
     Active Substance: DILTIAZEM
     Dosage: 30 MG

REACTIONS (32)
  - Heart rate increased [Recovering/Resolving]
  - Anxiety [Unknown]
  - Blood sodium decreased [Unknown]
  - Dyspnoea [Not Recovered/Not Resolved]
  - Oedema peripheral [Unknown]
  - Diarrhoea [Unknown]
  - Chest pain [Recovered/Resolved]
  - Diverticulitis [Unknown]
  - Upper respiratory tract infection [Unknown]
  - Renal disorder [Unknown]
  - Nasopharyngitis [Unknown]
  - Nausea [Recovered/Resolved]
  - Vomiting [Unknown]
  - Haematochezia [Unknown]
  - Hypotension [Unknown]
  - Secretion discharge [Unknown]
  - Eructation [Unknown]
  - Atrial fibrillation [Recovering/Resolving]
  - Swelling [Recovering/Resolving]
  - Pulmonary arterial pressure decreased [Unknown]
  - Cough [Unknown]
  - Chest discomfort [Unknown]
  - Headache [Recovered/Resolved]
  - Weight decreased [Unknown]
  - Cardioversion [Unknown]
  - Pleural effusion [Recovering/Resolving]
  - Bacterial infection [Unknown]
  - Crying [Unknown]
  - Insomnia [Unknown]
  - Decreased appetite [Unknown]
  - Fatigue [Recovered/Resolved]
  - Food poisoning [Unknown]

NARRATIVE: CASE EVENT DATE: 20190203
